FAERS Safety Report 9104058 (Version 2)
Quarter: 2013Q1

REPORT INFORMATION
  Report Type: Spontaneous
  Country: US (occurrence: US)
  Receive Date: 20130219
  Receipt Date: 20130312
  Transmission Date: 20140127
  Serious: No
  Sender: FDA-Public Use
  Company Number: US-JNJFOC-20130202943

PATIENT
  Sex: Male

DRUGS (10)
  1. DURAGESIC [Suspect]
     Indication: PRODUCT USED FOR UNKNOWN INDICATION
     Route: 062
     Dates: start: 20130118
  2. TRICOR [Concomitant]
     Route: 065
  3. ZANAFLEX [Concomitant]
     Route: 065
  4. METFORMIN HCL [Concomitant]
     Route: 065
  5. LIPITOR [Concomitant]
     Route: 065
  6. XYZAL [Concomitant]
     Route: 065
  7. MULTIVITAMINS [Concomitant]
     Route: 065
  8. DIOVAN [Concomitant]
     Route: 065
  9. DOCUSATE SODIUM [Concomitant]
     Route: 065
  10. 7 KETO DHEA [Concomitant]
     Route: 065

REACTIONS (5)
  - Product adhesion issue [Unknown]
  - Wrong technique in drug usage process [Unknown]
  - Hyperhidrosis [Unknown]
  - Product quality issue [Unknown]
  - Wrong technique in drug usage process [Unknown]
